FAERS Safety Report 16901329 (Version 4)
Quarter: 2019Q4

REPORT INFORMATION
  Report Type: Spontaneous
  Country: DE (occurrence: DE)
  Receive Date: 20191009
  Receipt Date: 20191206
  Transmission Date: 20200122
  Serious: Yes (Death, Other)
  Sender: FDA-Public Use
  Company Number: DE-B.I. PHARMACEUTICALS,INC./RIDGEFIELD-2019-BI-106441

PATIENT
  Age: 58 Year
  Sex: Female

DRUGS (3)
  1. DOCETAXEL. [Suspect]
     Active Substance: DOCETAXEL
     Indication: PRODUCT USED FOR UNKNOWN INDICATION
     Dosage: 50 MG/SQUAREMETER D1, Q2W (ONCE EVERY TWO WEEKS)
     Route: 065
  2. NIVOLUMAB [Suspect]
     Active Substance: NIVOLUMAB
     Indication: NON-SMALL CELL LUNG CANCER
     Dosage: DOSE: 3 MG/KG
     Route: 042
     Dates: start: 20170720, end: 20180316
  3. VARGATEF [Suspect]
     Active Substance: NINTEDANIB
     Indication: NON-SMALL CELL LUNG CANCER
     Dosage: 100MG PER OS 2-0-2 (D2-14, Q 2 W ONCE EVERY TWO WEEKS)
     Route: 048
     Dates: start: 20180326, end: 20180715

REACTIONS (10)
  - Paraparesis [Unknown]
  - Hypokalaemia [Unknown]
  - Leukopenia [Unknown]
  - Delirium [Unknown]
  - Hyponatraemia [Unknown]
  - Metastases to meninges [Unknown]
  - Dermatitis [Unknown]
  - Fatigue [Unknown]
  - Inappropriate antidiuretic hormone secretion [Unknown]
  - Death [Fatal]

NARRATIVE: CASE EVENT DATE: 20181220
